FAERS Safety Report 7227949-9 (Version None)
Quarter: 2011Q1

REPORT INFORMATION
  Report Type: 
  Country: None (occurrence: None)
  Receive Date: 20110112
  Receipt Date: 20110112
  Transmission Date: 20110831
  Serious: Yes (Other)
  Sender: FDA-Public Use
  Company Number: None

PATIENT
  Age: 67 Year
  Sex: Male
  Weight: 104.3273 kg

DRUGS (2)
  1. BUPROPION HCL [Suspect]
     Indication: DEPRESSION
     Dates: start: 20101201, end: 20101231
  2. WELLBUTRIN XL [Concomitant]

REACTIONS (3)
  - FEELING ABNORMAL [None]
  - DEPRESSION [None]
  - ANXIETY [None]
